FAERS Safety Report 21363758 (Version 1)
Quarter: 2022Q3

REPORT INFORMATION
  Report Type: Spontaneous
  Country: US (occurrence: US)
  Receive Date: 20220922
  Receipt Date: 20220922
  Transmission Date: 20221026
  Serious: No
  Sender: FDA-Public Use
  Company Number: US-TAKEDA-2022TUS065172

PATIENT
  Sex: Male
  Weight: 84 kg

DRUGS (2)
  1. MYDAYIS [Suspect]
     Active Substance: AMPHETAMINE ASPARTATE\AMPHETAMINE SULFATE\DEXTROAMPHETAMINE SACCHARATE\DEXTROAMPHETAMINE SULFATE
     Indication: Attention deficit hyperactivity disorder
     Dosage: 12.5 MILLIGRAM
     Route: 065
     Dates: start: 202203
  2. CORLANOR [Concomitant]
     Active Substance: IVABRADINE HYDROCHLORIDE
     Dosage: UNK
     Route: 065

REACTIONS (2)
  - Ageusia [Unknown]
  - Weight decreased [Unknown]
